FAERS Safety Report 18067428 (Version 1)
Quarter: 2020Q3

REPORT INFORMATION
  Report Type: Spontaneous
  Country: ES (occurrence: ES)
  Receive Date: 20200724
  Receipt Date: 20200724
  Transmission Date: 20201103
  Serious: Yes (Other)
  Sender: FDA-Public Use
  Company Number: NVSC2020ES204073

PATIENT
  Age: 59 Year
  Sex: Female

DRUGS (3)
  1. IBUPROFENO SANDOZ [Suspect]
     Active Substance: IBUPROFEN
     Dosage: 400 MG, Q8H
     Route: 048
     Dates: start: 20191010
  2. PARACETAMOL [Suspect]
     Active Substance: ACETAMINOPHEN
     Indication: ANTIPYRESIS
     Dosage: 1 G, Q8H
     Route: 048
     Dates: start: 20191004, end: 20191009
  3. IBUPROFENO SANDOZ [Suspect]
     Active Substance: IBUPROFEN
     Indication: PAIN
     Dosage: 600 MG, Q8H
     Route: 048
     Dates: start: 20191004, end: 20191009

REACTIONS (1)
  - Hepatitis [Recovered/Resolved]

NARRATIVE: CASE EVENT DATE: 20191007
